FAERS Safety Report 5925501-6 (Version None)
Quarter: 2008Q4

REPORT INFORMATION
  Report Type: 
  Country: None (occurrence: None)
  Receive Date: 20081021
  Receipt Date: 20081013
  Transmission Date: 20090506
  Serious: Yes (Disabling, Other)
  Sender: FDA-Public Use
  Company Number: PHEH2008US09187

PATIENT
  Sex: Female

DRUGS (2)
  1. ZOMETA [Suspect]
     Indication: METASTASES TO BONE
     Dosage: 3 MG, QMO
     Route: 042
     Dates: start: 20050601, end: 20080701
  2. XELODA [Concomitant]
     Dosage: 2 G, BID X 7DAYS Q2WEEKS
     Dates: start: 20071201, end: 20080401

REACTIONS (2)
  - FOOT FRACTURE [None]
  - METASTASES TO LIVER [None]
